FAERS Safety Report 21785255 (Version 2)
Quarter: 2023Q1

REPORT INFORMATION
  Report Type: Report from Study
  Country: IL (occurrence: None)
  Receive Date: 20221227
  Receipt Date: 20230112
  Transmission Date: 20230418
  Serious: Yes (Hospitalization)
  Sender: FDA-Public Use
  Company Number: IL-Eisai Medical Research-EC-2022-130753

PATIENT
  Age: 68 Year
  Sex: Female

DRUGS (11)
  1. LENVATINIB [Suspect]
     Active Substance: LENVATINIB
     Indication: Ovarian cancer
     Dosage: C1D1
     Route: 048
     Dates: start: 20221106, end: 2022
  2. LENVATINIB [Suspect]
     Active Substance: LENVATINIB
     Dosage: C2D1
     Route: 048
     Dates: start: 20221204, end: 202212
  3. PEMBROLIZUMAB [Suspect]
     Active Substance: PEMBROLIZUMAB
     Indication: Ovarian cancer
     Dosage: C1D1
     Route: 041
     Dates: start: 20221106, end: 2022
  4. PEMBROLIZUMAB [Suspect]
     Active Substance: PEMBROLIZUMAB
     Dosage: C2D1
     Route: 041
     Dates: start: 20221204, end: 202212
  5. CHOLECALCIFEROL [Concomitant]
     Active Substance: CHOLECALCIFEROL
  6. FOLIC ACID [Concomitant]
     Active Substance: FOLIC ACID
  7. BISOPROLOL FUMARATE [Concomitant]
     Active Substance: BISOPROLOL FUMARATE
  8. DIOVAN [Concomitant]
     Active Substance: VALSARTAN
  9. DUPLEX [AMLODIPINE BESILATE;VALSARTAN] [Concomitant]
  10. EUTHYROX [Concomitant]
     Active Substance: LEVOTHYROXINE SODIUM
  11. CADEX [DOXAZOSIN MESILATE] [Concomitant]

REACTIONS (2)
  - Hepatotoxicity [Unknown]
  - Drug-induced liver injury [Unknown]

NARRATIVE: CASE EVENT DATE: 20221221
